FAERS Safety Report 8139054-8 (Version None)
Quarter: 2012Q1

REPORT INFORMATION
  Report Type: 
  Country: None (occurrence: None)
  Receive Date: 20120215
  Receipt Date: 20120208
  Transmission Date: 20120608
  Serious: Yes (Other)
  Sender: FDA-Public Use
  Company Number: BR-BAYER-2011-040979

PATIENT
  Age: 53 Year
  Sex: Female

DRUGS (1)
  1. BETAFERON [Suspect]
     Dosage: 8 MIU, QOD
     Route: 058
     Dates: start: 20110801

REACTIONS (4)
  - BLOOD PRESSURE INCREASED [None]
  - DIABETES MELLITUS [None]
  - MALAISE [None]
  - WEIGHT DECREASED [None]
